FAERS Safety Report 13560148 (Version 4)
Quarter: 2017Q2

REPORT INFORMATION
  Report Type: Spontaneous
  Country: IT (occurrence: IT)
  Receive Date: 20170518
  Receipt Date: 20170530
  Transmission Date: 20170830
  Serious: Yes (Hospitalization)
  Sender: FDA-Public Use
  Company Number: IT-TEVA-767514ACC

PATIENT
  Age: 53 Year
  Sex: Female

DRUGS (4)
  1. MIRTAZAPINA SANDOZ S.P.A [Interacting]
     Active Substance: MIRTAZAPINE
     Indication: PSYCHOTIC DISORDER
     Dosage: 30 MILLIGRAM DAILY;
     Route: 048
     Dates: end: 20170421
  2. DELORAZEPAM AUROBINDO ITALIA [Concomitant]
     Indication: PSYCHOTIC DISORDER
     Route: 048
     Dates: end: 20170428
  3. OLANZAPINA TEVA B.V. [Suspect]
     Active Substance: OLANZAPINE
     Indication: INTELLECTUAL DISABILITY
     Route: 048
     Dates: end: 20170421
  4. VALDORM (FLURAZEPAM HYDROCHLORIDE) [Concomitant]
     Active Substance: FLURAZEPAM HYDROCHLORIDE
     Indication: PRODUCT USED FOR UNKNOWN INDICATION
     Route: 048
     Dates: end: 20170428

REACTIONS (2)
  - Drug interaction [Unknown]
  - Hyponatraemia [Recovered/Resolved]

NARRATIVE: CASE EVENT DATE: 20170422
